FAERS Safety Report 7138520-1 (Version None)
Quarter: 2010Q4

REPORT INFORMATION
  Report Type: 
  Country: None (occurrence: None)
  Receive Date: 20101202
  Receipt Date: 20101202
  Transmission Date: 20110411
  Serious: No
  Sender: FDA-Public Use
  Company Number: None

PATIENT
  Sex: Male
  Weight: 77.1115 kg

DRUGS (2)
  1. AMLODIPINE [Suspect]
     Indication: HYPERTENSION
     Dosage: AMLODIPINE 5G 1PO QD PO -047
     Route: 048
     Dates: start: 20101102, end: 20101103
  2. BENAZEPRIL [Suspect]
     Indication: HYPERTENSION
     Dosage: BENAZEPRIL 10MG 1 QD PO - 047
     Route: 048
     Dates: start: 20101102, end: 20101103

REACTIONS (4)
  - ABDOMINAL PAIN [None]
  - DIARRHOEA [None]
  - DIZZINESS [None]
  - PAIN [None]
